FAERS Safety Report 9325838 (Version 1)
Quarter: 2013Q2

REPORT INFORMATION
  Report Type: Spontaneous
  Country: US (occurrence: None)
  Receive Date: 20130603
  Receipt Date: 20130603
  Transmission Date: 20140414
  Serious: Yes (Other)
  Sender: FDA-Public Use
  Company Number: None

PATIENT
  Age: 30 Year
  Sex: Male
  Weight: 58.97 kg

DRUGS (1)
  1. DIVALPROEX SODIUM [Suspect]
     Indication: AFFECTIVE DISORDER
     Dosage: 2 TABLETS
     Route: 048
     Dates: start: 20071107, end: 20130311

REACTIONS (2)
  - Anaemia [None]
  - Thrombocytopenia [None]
